FAERS Safety Report 9684151 (Version 1)
Quarter: 2013Q4

REPORT INFORMATION
  Report Type: Spontaneous
  Country: US (occurrence: None)
  Receive Date: 20131111
  Receipt Date: 20131111
  Transmission Date: 20140711
  Serious: Yes (Other)
  Sender: FDA-Public Use
  Company Number: None

PATIENT
  Sex: Male
  Weight: 26.31 kg

DRUGS (1)
  1. MIRALAX [Suspect]
     Indication: CONSTIPATION
     Route: 048

REACTIONS (10)
  - Screaming [None]
  - Fear [None]
  - Pain [None]
  - Memory impairment [None]
  - Hepatic enzyme increased [None]
  - Aggression [None]
  - Middle insomnia [None]
  - Personality change [None]
  - Thumb sucking [None]
  - Nervous system disorder [None]
